FAERS Safety Report 4404512-6 (Version None)
Quarter: 2004Q3

REPORT INFORMATION
  Report Type: 
  Country: None (occurrence: None)
  Receive Date: 20040721
  Receipt Date: 20040721
  Transmission Date: 20050211
  Serious: Yes (Other)
  Sender: FDA-Public Use
  Company Number: None

PATIENT
  Age: 64 Year
  Sex: Female
  Weight: 70.5 kg

DRUGS (1)
  1. TEMODAR [Suspect]
     Indication: GLIOMA
     Dosage: 250 MG PO X 7 DAYS ON, 7 DYS ON Q 25 DAYS
     Route: 048
     Dates: start: 20040622, end: 20040719

REACTIONS (1)
  - LENTIGO MALIGNA STAGE UNSPECIFIED [None]
